FAERS Safety Report 14328965 (Version 2)
Quarter: 2018Q3

REPORT INFORMATION
  Report Type: Spontaneous
  Country: US (occurrence: US)
  Receive Date: 20171227
  Receipt Date: 20180717
  Transmission Date: 20181010
  Serious: No
  Sender: FDA-Public Use
  Company Number: US-PFIZER INC-2017549992

PATIENT
  Age: 74 Year
  Sex: Female
  Weight: 44 kg

DRUGS (1)
  1. IBRANCE [Suspect]
     Active Substance: PALBOCICLIB
     Dosage: 125 MG, CYCLIC (4 WEEK CYCLE)

REACTIONS (1)
  - White blood cell count decreased [Not Recovered/Not Resolved]
